FAERS Safety Report 5016885-4 (Version None)
Quarter: 2006Q2

REPORT INFORMATION
  Report Type: 
  Country: None (occurrence: None)
  Receive Date: 20060526
  Receipt Date: 20060510
  Transmission Date: 20061013
  Serious: Yes (Death, Hospitalization)
  Sender: FDA-Public Use
  Company Number: 2005BI021009

PATIENT
  Age: 53 Year
  Sex: Male
  Weight: 68.0396 kg

DRUGS (26)
  1. AVONEX [Suspect]
     Indication: MULTIPLE SCLEROSIS
     Dosage: 30 UG; QW; IM
     Route: 030
     Dates: start: 19990101, end: 20030801
  2. AVONEX [Suspect]
     Indication: MULTIPLE SCLEROSIS
     Dosage: 30 UG; QW; IM
     Route: 030
     Dates: start: 20030801, end: 20050501
  3. AVONEX [Suspect]
     Indication: MULTIPLE SCLEROSIS
     Dosage: IM
     Route: 030
     Dates: start: 20051001, end: 20051001
  4. AVONEX [Suspect]
     Indication: MULTIPLE SCLEROSIS
     Dosage: IM
     Route: 030
     Dates: start: 20051001
  5. ASCORBIC ACID [Concomitant]
  6. LIORESAL [Concomitant]
  7. LOVENOX [Concomitant]
  8. PROVENTIL [Concomitant]
  9. ATROVENT [Concomitant]
  10. REGLAN [Concomitant]
  11. PROTONIX [Concomitant]
  12. BACTROBAN [Concomitant]
  13. ZOFRAN [Concomitant]
  14. LASIX [Concomitant]
  15. VERAPAMIL [Concomitant]
  16. MORPHINE SULFATE [Concomitant]
  17. ATIVAN [Concomitant]
  18. TYLENOL (CAPLET) [Concomitant]
  19. VITAMIN B-12 [Concomitant]
  20. XOPENEX [Concomitant]
  21. PULMICORT [Concomitant]
  22. NAPHCON [Concomitant]
  23. ROBITUSSIN [Concomitant]
  24. KEPPRA [Concomitant]
  25. COMPAZINE [Concomitant]
  26. VERSED [Concomitant]

REACTIONS (11)
  - BONE DISORDER [None]
  - CONVULSION [None]
  - DECUBITUS ULCER [None]
  - DEPRESSION [None]
  - DIABETES MELLITUS [None]
  - ENCEPHALITIS [None]
  - GASTRIC DISORDER [None]
  - HEADACHE [None]
  - PAIN [None]
  - SEPSIS [None]
  - URINARY TRACT INFECTION [None]
